FAERS Safety Report 21624232 (Version 1)
Quarter: 2022Q4

REPORT INFORMATION
  Report Type: Report from Study
  Country: US (occurrence: US)
  Receive Date: 20221121
  Receipt Date: 20221121
  Transmission Date: 20230112
  Serious: Yes (Other)
  Sender: FDA-Public Use
  Company Number: US-GILEAD-2022-0605358

PATIENT
  Age: 89 Year
  Sex: Female

DRUGS (2)
  1. IDELALISIB [Suspect]
     Active Substance: IDELALISIB
     Indication: Leukaemia
     Dosage: 100 MG, BID
     Route: 048
     Dates: start: 20180518
  2. IDELALISIB [Suspect]
     Active Substance: IDELALISIB
     Indication: Marginal zone lymphoma

REACTIONS (4)
  - Facial bones fracture [Not Recovered/Not Resolved]
  - Contusion [Not Recovered/Not Resolved]
  - Fall [Recovered/Resolved]
  - Mobility decreased [Not Recovered/Not Resolved]

NARRATIVE: CASE EVENT DATE: 20221101
